FAERS Safety Report 6939261-3 (Version None)
Quarter: 2010Q3

REPORT INFORMATION
  Report Type: 
  Country: None (occurrence: None)
  Receive Date: 20100824
  Receipt Date: 20100818
  Transmission Date: 20110219
  Serious: Yes (Other)
  Sender: FDA-Public Use
  Company Number: US-CEPHALON-2010004312

PATIENT
  Sex: Male

DRUGS (2)
  1. TRISENOX [Suspect]
     Indication: ACUTE PROMYELOCYTIC LEUKAEMIA
     Route: 041
  2. KEPPRA [Concomitant]
     Indication: PROPHYLAXIS

REACTIONS (6)
  - DISSEMINATED INTRAVASCULAR COAGULATION [None]
  - HAEMORRHAGE INTRACRANIAL [None]
  - HERPES ZOSTER [None]
  - TREMOR [None]
  - VISION BLURRED [None]
  - WOUND [None]
